FAERS Safety Report 17487429 (Version 1)
Quarter: 2020Q1

REPORT INFORMATION
  Report Type: Spontaneous
  Country: US (occurrence: US)
  Receive Date: 20200303
  Receipt Date: 20200303
  Transmission Date: 20200409
  Serious: Yes (Hospitalization, Other)
  Sender: FDA-Public Use
  Company Number: US-SCIEGEN PHARMACEUTICALS INC-2020SCILIT00059

PATIENT
  Age: 88 Year
  Sex: Female

DRUGS (13)
  1. ISOSORBIDE MONONITRATE. [Concomitant]
     Active Substance: ISOSORBIDE MONONITRATE
  2. SODIUM POLYSTYRENE SULFATE [Interacting]
     Active Substance: SODIUM POLYSTYRENE SULFONATE
  3. METFORMIN [Concomitant]
     Active Substance: METFORMIN HYDROCHLORIDE
  4. AMLODIPINE [Concomitant]
     Active Substance: AMLODIPINE BESYLATE
  5. FUROSEMIDE. [Concomitant]
     Active Substance: FUROSEMIDE
  6. CALCIUM GLUCONATE. [Interacting]
     Active Substance: CALCIUM GLUCONATE
  7. DEXTROSE. [Interacting]
     Active Substance: DEXTROSE
  8. ATROPINE. [Interacting]
     Active Substance: ATROPINE
  9. LEVOTHYROXINE. [Concomitant]
     Active Substance: LEVOTHYROXINE
  10. INSULIN [Interacting]
     Active Substance: INSULIN NOS
  11. RANOLAZINE EXTENDED-RELEASE TABLETS [Suspect]
     Active Substance: RANOLAZINE
  12. OMEPRAZOLE. [Concomitant]
     Active Substance: OMEPRAZOLE
  13. ALBUTEROL. [Interacting]
     Active Substance: ALBUTEROL

REACTIONS (4)
  - Bradycardia [Recovered/Resolved]
  - Hyperkalaemia [Recovered/Resolved]
  - Electrocardiogram QT prolonged [Unknown]
  - Acute kidney injury [Recovered/Resolved]
